FAERS Safety Report 22223127 (Version 2)
Quarter: 2023Q2

REPORT INFORMATION
  Report Type: Spontaneous
  Country: CA (occurrence: CA)
  Receive Date: 20230418
  Receipt Date: 20230425
  Transmission Date: 20230721
  Serious: Yes (Death, Other)
  Sender: FDA-Public Use
  Company Number: CA-PFIZER INC-202300159562

PATIENT
  Age: 46 Year
  Sex: Female

DRUGS (1)
  1. TRIAZOLAM [Interacting]
     Active Substance: TRIAZOLAM
     Dosage: 1.95 MG

REACTIONS (3)
  - Completed suicide [Fatal]
  - Alcohol interaction [Fatal]
  - Toxicity to various agents [Fatal]
